FAERS Safety Report 4643620-1 (Version None)
Quarter: 2005Q2

REPORT INFORMATION
  Report Type: 
  Country: None (occurrence: None)
  Receive Date: 20050425
  Receipt Date: 20050414
  Transmission Date: 20051028
  Serious: Yes (Hospitalization)
  Sender: FDA-Public Use
  Company Number: US-AMGEN-US127000

PATIENT
  Age: 75 Year
  Sex: Female
  Weight: 113.5 kg

DRUGS (4)
  1. EPOGEN [Suspect]
     Indication: DIALYSIS
     Dates: start: 20041101
  2. ZITHROMAX [Concomitant]
     Route: 042
  3. GENTAMYCIN SULFATE [Concomitant]
     Route: 042
  4. BACTRIM [Concomitant]
     Route: 048

REACTIONS (7)
  - ENTEROBACTER INFECTION [None]
  - KLEBSIELLA INFECTION [None]
  - NEUTROPENIA [None]
  - PNEUMONIA [None]
  - SEPSIS [None]
  - SPUTUM CULTURE POSITIVE [None]
  - WHITE BLOOD CELL COUNT DECREASED [None]
